FAERS Safety Report 15348082 (Version 1)
Quarter: 2018Q3

REPORT INFORMATION
  Report Type: Spontaneous
  Country: US (occurrence: US)
  Receive Date: 20180904
  Receipt Date: 20180904
  Transmission Date: 20181010
  Serious: No
  Sender: FDA-Public Use
  Company Number: US-TEVA-2018-US-949685

PATIENT
  Age: 88 Year
  Sex: Male

DRUGS (2)
  1. CLONAZEPAM. [Suspect]
     Active Substance: CLONAZEPAM
     Indication: DEPRESSION
     Dosage: 1 MILLIGRAM DAILY;
     Route: 065
     Dates: start: 2016
  2. CLONAZEPAM. [Suspect]
     Active Substance: CLONAZEPAM
     Indication: ANXIETY

REACTIONS (3)
  - Fatigue [Unknown]
  - Memory impairment [Unknown]
  - Drug prescribing error [Unknown]

NARRATIVE: CASE EVENT DATE: 2016
